FAERS Safety Report 7247524-X (Version None)
Quarter: 2011Q1

REPORT INFORMATION
  Report Type: 
  Country: None (occurrence: None)
  Receive Date: 20110127
  Receipt Date: 20110120
  Transmission Date: 20110831
  Serious: Yes (Other)
  Sender: FDA-Public Use
  Company Number: US-SANOFI-AVENTIS-2011SA004782

PATIENT
  Age: 63 Year
  Sex: Female

DRUGS (1)
  1. AMBIEN CR [Suspect]
     Route: 048
     Dates: start: 20090101, end: 20100413

REACTIONS (3)
  - ROAD TRAFFIC ACCIDENT [None]
  - HOT FLUSH [None]
  - LOSS OF CONSCIOUSNESS [None]
